FAERS Safety Report 9924974 (Version 1)
Quarter: 2014Q1

REPORT INFORMATION
  Report Type: Spontaneous
  Country: US (occurrence: None)
  Receive Date: 20140226
  Receipt Date: 20140226
  Transmission Date: 20141002
  Serious: Yes (Other)
  Sender: FDA-Public Use
  Company Number: None

PATIENT
  Age: 68 Year
  Sex: Male
  Weight: 70.31 kg

DRUGS (2)
  1. PROPOFOL [Suspect]
     Indication: SEDATIVE THERAPY
     Dosage: IV INFUSION 1/2 HR, INTRAVENOUS
     Route: 042
  2. PROPOFOL [Suspect]
     Indication: COLONOSCOPY
     Dosage: IV INFUSION 1/2 HR, INTRAVENOUS
     Route: 042

REACTIONS (3)
  - Postoperative fever [None]
  - Chills [None]
  - Myalgia [None]
